FAERS Safety Report 23921574 (Version 1)
Quarter: 2024Q2

REPORT INFORMATION
  Report Type: Spontaneous
  Country: US (occurrence: US)
  Receive Date: 20240530
  Receipt Date: 20240530
  Transmission Date: 20240716
  Serious: No
  Sender: FDA-Public Use
  Company Number: US-VIIV HEALTHCARE LIMITED-US2024AMR061469

PATIENT
  Age: 57 Year
  Sex: Female

DRUGS (3)
  1. RILPIVIRINE [Suspect]
     Active Substance: RILPIVIRINE
     Indication: HIV infection
     Dosage: UNK UNK, MO (600/900) MONTHLY FOR 2 MONTHS, THEN EVERY OTHER MONTH THEREAFTER
     Route: 030
     Dates: start: 20240416, end: 20240514
  2. CABOTEGRAVIR [Suspect]
     Active Substance: CABOTEGRAVIR
     Indication: HIV infection
     Dosage: UNK UNK, MO (600/900) MONTHLY FOR 2 MONTHS, THEN EVERY OTHER MONTH THEREAFTER
     Route: 030
     Dates: start: 20240416, end: 20240514
  3. AMLODIPINE [Concomitant]
     Active Substance: AMLODIPINE BESYLATE
     Indication: Product used for unknown indication
     Dosage: UNK
     Route: 065
     Dates: start: 202404

REACTIONS (2)
  - Dermatitis atopic [Not Recovered/Not Resolved]
  - Skin lesion [Unknown]

NARRATIVE: CASE EVENT DATE: 20240420
